FAERS Safety Report 9093833 (Version 1)
Quarter: 2013Q1

REPORT INFORMATION
  Report Type: Report from Study
  Country: US (occurrence: US)
  Receive Date: 20130131
  Receipt Date: 20130131
  Transmission Date: 20140127
  Serious: No
  Sender: FDA-Public Use
  Company Number: US-ABBOTT-12P-163-1002456-00

PATIENT
  Age: 60 Year
  Sex: Female

DRUGS (7)
  1. HUMIRA [Suspect]
     Indication: CROHN^S DISEASE
     Dates: start: 20121024, end: 20121024
  2. HUMIRA [Suspect]
  3. PENTASA [Concomitant]
     Indication: CROHN^S DISEASE
     Route: 048
  4. AZATHIOPRINE [Concomitant]
     Indication: CROHN^S DISEASE
     Dosage: 1-1.5 EVERY DAY
     Route: 048
  5. OMEPRAZOLE [Concomitant]
     Indication: VOMITING
     Route: 048
  6. GLIMEPIRIDE [Concomitant]
     Indication: DIABETES MELLITUS
     Route: 048
  7. IMODIUM [Concomitant]
     Indication: DIARRHOEA

REACTIONS (1)
  - Gastrointestinal pain [Not Recovered/Not Resolved]
